FAERS Safety Report 11926679 (Version 1)
Quarter: 2016Q1

REPORT INFORMATION
  Report Type: Spontaneous
  Country: US (occurrence: None)
  Receive Date: 20160115
  Receipt Date: 20160115
  Transmission Date: 20160526
  Serious: Yes (Death)
  Sender: FDA-Public Use
  Company Number: None

PATIENT
  Age: 47 Year
  Sex: Male

DRUGS (4)
  1. LISINOPRIL. [Concomitant]
     Active Substance: LISINOPRIL
  2. PRILOSEC (GENERIC) [Concomitant]
  3. MULTI VITAMIN [Concomitant]
     Active Substance: VITAMINS
  4. LISINOPRIL HCTZ 10-12.5 MG LUPIN PHARMACEUTICALS [Suspect]
     Active Substance: HYDROCHLOROTHIAZIDE\LISINOPRIL
     Indication: HYPERTENSION
     Dosage: TAKEN BY MOUTH
     Route: 048

REACTIONS (2)
  - Pharyngeal oedema [None]
  - Mouth swelling [None]

NARRATIVE: CASE EVENT DATE: 20151214
